FAERS Safety Report 18249107 (Version 10)
Quarter: 2021Q1

REPORT INFORMATION
  Report Type: Report from Study
  Country: JP (occurrence: JP)
  Receive Date: 20200909
  Receipt Date: 20210210
  Transmission Date: 20210419
  Serious: Yes (Hospitalization, Other)
  Sender: FDA-Public Use
  Company Number: JP-ROCHE-2663349

PATIENT
  Age: 66 Year
  Sex: Male
  Weight: 70 kg

DRUGS (34)
  1. PROEMEND [Concomitant]
     Active Substance: FOSAPREPITANT
     Route: 042
     Dates: start: 20200929, end: 20201201
  2. GASTER [Concomitant]
     Active Substance: FAMOTIDINE
     Dosage: DAY1
     Route: 065
     Dates: start: 20200929, end: 20201201
  3. PRAZAXA [Concomitant]
     Active Substance: DABIGATRAN ETEXILATE MESYLATE
     Indication: ATRIAL FIBRILLATION
     Route: 048
  4. BROTIZOLAM [Concomitant]
     Active Substance: BROTIZOLAM
  5. BEVACIZUMAB. [Suspect]
     Active Substance: BEVACIZUMAB
     Dosage: DAY1
     Route: 041
     Dates: start: 20200929, end: 20201201
  6. CAPECITABINE. [Suspect]
     Active Substance: CAPECITABINE
     Indication: RECTAL CANCER
     Dosage: DAY1?15
     Route: 048
     Dates: start: 20200727, end: 20200824
  7. DEXART [Concomitant]
     Active Substance: DEXAMETHASONE SODIUM PHOSPHATE
     Dosage: DAY1
     Route: 042
     Dates: start: 20200929, end: 20201201
  8. LOPEMIN [Concomitant]
     Dosage: AS REQUIRED
     Route: 048
     Dates: start: 20200801
  9. TORSEMIDE. [Concomitant]
     Active Substance: TORSEMIDE
     Indication: ATRIAL FIBRILLATION
     Route: 048
  10. BEVACIZUMAB. [Suspect]
     Active Substance: BEVACIZUMAB
     Indication: RECTAL CANCER
     Route: 041
     Dates: start: 20200727, end: 20200817
  11. PROEMEND [Concomitant]
     Active Substance: FOSAPREPITANT
     Route: 042
     Dates: start: 20200727, end: 20200817
  12. DEXART [Concomitant]
     Active Substance: DEXAMETHASONE SODIUM PHOSPHATE
     Dosage: DAY1
     Route: 042
     Dates: start: 20200727, end: 20200817
  13. DECADRON [Concomitant]
     Active Substance: DEXAMETHASONE
     Dosage: DAY2?4
     Route: 048
     Dates: start: 20200929, end: 20201204
  14. GLUCONSAN K [Concomitant]
     Active Substance: POTASSIUM GLUCONATE
     Dosage: DOSE INTERVAL UNCERTAIN
     Route: 048
  15. EQUANIL [Concomitant]
     Active Substance: MEPROBAMATE
     Indication: DIABETES MELLITUS
     Route: 048
  16. CAPECITABINE. [Suspect]
     Active Substance: CAPECITABINE
     Dosage: DAY1?15
     Route: 048
     Dates: start: 20200929, end: 20201201
  17. ALOXI [Concomitant]
     Active Substance: PALONOSETRON HYDROCHLORIDE
     Dosage: DAY1
     Route: 042
     Dates: start: 20200929, end: 20201201
  18. VALSARTAN. [Concomitant]
     Active Substance: VALSARTAN
     Indication: HYPERTENSION
     Route: 048
  19. ARTIST [Concomitant]
     Active Substance: CARVEDILOL
     Indication: DIABETES MELLITUS
     Route: 048
  20. MIYA?BM [Concomitant]
     Active Substance: CLOSTRIDIUM BUTYRICUM SPORES STRAIN M-55
     Route: 048
  21. IOMERON [Concomitant]
     Active Substance: IOMEPROL
     Dosage: DOSAGE IS UNCERTAIN.
     Route: 065
  22. ALOXI [Concomitant]
     Active Substance: PALONOSETRON HYDROCHLORIDE
     Dosage: DAY1
     Route: 042
     Dates: start: 20200727, end: 20200817
  23. GASTER [Concomitant]
     Active Substance: FAMOTIDINE
     Dosage: DAY1
     Route: 065
     Dates: start: 20200727, end: 20200817
  24. AMLODIPINE [Concomitant]
     Active Substance: AMLODIPINE BESYLATE
     Indication: HYPERTENSION
     Route: 048
  25. CALONAL [Concomitant]
     Active Substance: ACETAMINOPHEN
     Indication: TUMOUR PAIN
     Route: 048
     Dates: start: 20200720
  26. NOVAMIN (JAPAN) [Concomitant]
     Dosage: AS REQUIRED
     Route: 048
     Dates: start: 20200817
  27. NEXIUM [Concomitant]
     Active Substance: ESOMEPRAZOLE MAGNESIUM
     Indication: PROPHYLAXIS
     Route: 048
  28. SOLANAX [Suspect]
     Active Substance: ALPRAZOLAM
     Indication: PRODUCT USED FOR UNKNOWN INDICATION
     Dosage: AS REQUIRED
     Route: 048
     Dates: start: 20200824
  29. IRINOTECAN HYDROCHLORIDE HYDRATE [Suspect]
     Active Substance: IRINOTECAN HYDROCHLORIDE
     Indication: RECTAL CANCER
     Dosage: DAY1
     Route: 041
     Dates: start: 20200727, end: 20200817
  30. OXALIPLATIN. [Suspect]
     Active Substance: OXALIPLATIN
     Indication: RECTAL CANCER
     Dosage: DAY1
     Route: 041
     Dates: start: 20200727, end: 20200817
  31. OXALIPLATIN. [Suspect]
     Active Substance: OXALIPLATIN
     Dosage: DAY1
     Route: 041
     Dates: start: 20200929, end: 20201201
  32. DECADRON [Concomitant]
     Active Substance: DEXAMETHASONE
     Dosage: DAY2?4
     Route: 048
     Dates: start: 20200728, end: 20200817
  33. CARVEDILOL. [Concomitant]
     Active Substance: CARVEDILOL
     Indication: ATRIAL FIBRILLATION
     Route: 048
  34. ROSUVASTATIN. [Concomitant]
     Active Substance: ROSUVASTATIN

REACTIONS (15)
  - Shock [Recovered/Resolved]
  - Reexpansion pulmonary oedema [Recovered/Resolved]
  - Metastases to lung [Unknown]
  - Decreased appetite [Recovered/Resolved]
  - Hypokalaemia [Recovered/Resolved]
  - Shock [Recovered/Resolved]
  - Pneumothorax [Recovered/Resolved]
  - Acute kidney injury [Unknown]
  - Acute kidney injury [Recovered/Resolved]
  - Diarrhoea [Recovered/Resolved]
  - Diarrhoea [Recovered/Resolved]
  - Pneumothorax [Unknown]
  - Decreased appetite [Recovered/Resolved]
  - Acute kidney injury [Recovered/Resolved]
  - Blood pressure decreased [Unknown]

NARRATIVE: CASE EVENT DATE: 20200803
